FAERS Safety Report 21624964 (Version 2)
Quarter: 2022Q4

REPORT INFORMATION
  Report Type: Spontaneous
  Country: US (occurrence: US)
  Receive Date: 20221122
  Receipt Date: 20221202
  Transmission Date: 20230112
  Serious: Yes (Other)
  Sender: FDA-Public Use
  Company Number: US-AUROBINDO-AUR-APL-2022-048382

PATIENT
  Age: 60 Year
  Sex: Male

DRUGS (2)
  1. METHOTREXATE [Suspect]
     Active Substance: METHOTREXATE
     Indication: Retinopathy proliferative
     Dosage: UNK, EVERY WEEK (400 ?G/0.1ML )
  2. METHOTREXATE [Suspect]
     Active Substance: METHOTREXATE
     Dosage: UNK EVERY 2 WEEKS(THROUGH THE POST-OPERATIVE WEEK 16 VISIT, FOR A TOTAL OF 11 INJECTIONS.)

REACTIONS (1)
  - Injury corneal [Unknown]
